FAERS Safety Report 5304286-0 (Version None)
Quarter: 2007Q2

REPORT INFORMATION
  Report Type: 
  Country: None (occurrence: None)
  Receive Date: 20070423
  Receipt Date: 20070411
  Transmission Date: 20071010
  Serious: Yes (Other)
  Sender: FDA-Public Use
  Company Number: PHBS2007BR06625

PATIENT
  Age: 13 Year
  Sex: Male

DRUGS (2)
  1. RITALIN [Suspect]
     Indication: AGITATION
     Dosage: 10 MG, TID
     Route: 048
  2. FLUOXETINE HYDROCHLORIDE [Concomitant]
     Indication: DEPRESSION
     Dosage: 1 TABLET/DAY
     Route: 048

REACTIONS (4)
  - ASTHENIA [None]
  - HYPOKINESIA [None]
  - SPEECH DISORDER [None]
  - TREMOR [None]
